FAERS Safety Report 16884378 (Version 1)
Quarter: 2019Q4

REPORT INFORMATION
  Report Type: Spontaneous
  Country: ES (occurrence: ES)
  Receive Date: 20191004
  Receipt Date: 20191004
  Transmission Date: 20200122
  Serious: Yes (Other)
  Sender: FDA-Public Use
  Company Number: ES-MYLANLABS-2019M1091138

PATIENT
  Age: 70 Year
  Sex: Female

DRUGS (2)
  1. ATORVASTATIN [Suspect]
     Active Substance: ATORVASTATIN
     Indication: HYPERLIPIDAEMIA
     Dosage: DOSIS IRREGULAR VARIABLE (VER NARRATIVO)
     Route: 048
     Dates: start: 201801, end: 20181128
  2. REVOLADE [Suspect]
     Active Substance: ELTROMBOPAG
     Indication: IMMUNE THROMBOCYTOPENIC PURPURA
     Dosage: VARIABLE
     Route: 048
     Dates: start: 20180401

REACTIONS (4)
  - Fatigue [Recovered/Resolved]
  - Drug interaction [Recovered/Resolved]
  - Thrombocytopenia [Recovering/Resolving]
  - Myalgia [Recovered/Resolved]

NARRATIVE: CASE EVENT DATE: 20181003
